FAERS Safety Report 9721917 (Version 1)
Quarter: 2013Q4

REPORT INFORMATION
  Report Type: Spontaneous
  Country: GB (occurrence: GB)
  Receive Date: 20131202
  Receipt Date: 20131202
  Transmission Date: 20140711
  Serious: Yes (Other)
  Sender: FDA-Public Use
  Company Number: GB-009507513-1311GBR012126

PATIENT
  Age: 37 Year
  Sex: Female

DRUGS (3)
  1. ISENTRESS [Suspect]
     Route: 048
  2. ANALGESIC (UNSPECIFIED) [Concomitant]
  3. AMLODIPINE [Concomitant]

REACTIONS (2)
  - Haemodialysis [Unknown]
  - Renal failure [Unknown]
